FAERS Safety Report 9392805 (Version 3)
Quarter: 2013Q3

REPORT INFORMATION
  Report Type: Report from Study
  Country: US (occurrence: US)
  Receive Date: 20130710
  Receipt Date: 20130808
  Transmission Date: 20140515
  Serious: Yes (Hospitalization)
  Sender: FDA-Public Use
  Company Number: US-ASTELLAS-2013US007078

PATIENT
  Age: 8 Year
  Sex: Male

DRUGS (5)
  1. TACROLIMUS OINTMENT [Suspect]
     Indication: DERMATITIS ATOPIC
     Dosage: 0.03 %, UNKNOWN/D
     Route: 061
     Dates: start: 20091217
  2. ALBUTEROL                          /00139501/ [Concomitant]
     Indication: ASTHMA
     Dosage: 2-4 PUFFS, PRN
     Route: 055
     Dates: start: 20070413
  3. ALVESCO [Concomitant]
     Indication: ASTHMA
     Dosage: 2 PUFFS, BID
     Route: 055
     Dates: start: 20110728
  4. BENADRYL                           /00000402/ [Concomitant]
     Indication: PRODUCT USED FOR UNKNOWN INDICATION
     Dosage: UNK
     Route: 065
  5. PREDNISONE [Concomitant]
     Indication: ASTHMA
     Dosage: UNK
     Route: 065

REACTIONS (3)
  - Status asthmaticus [Recovered/Resolved]
  - Rhinitis allergic [Recovered/Resolved]
  - Hypoxia [Recovered/Resolved]
